FAERS Safety Report 7786827-7 (Version None)
Quarter: 2011Q3

REPORT INFORMATION
  Report Type: 
  Country: None (occurrence: None)
  Receive Date: 20110928
  Receipt Date: 20110928
  Transmission Date: 20111222
  Serious: Yes (Hospitalization)
  Sender: FDA-Public Use
  Company Number: None

PATIENT
  Sex: Female
  Weight: 18.1 kg

DRUGS (6)
  1. VINCRISTINE SULFATE [Suspect]
     Dosage: 4.05 MG
  2. METHOTREXATE [Suspect]
     Dosage: 12 MG
  3. ONCASPAR [Suspect]
     Dosage: 1747.5 MG
  4. DEXAMETHASONE [Suspect]
     Dosage: 44 MG
  5. CYTARABINE [Suspect]
     Dosage: 70 MG
  6. LEUCOVORIN CALCIUM [Suspect]
     Dosage: 6 MG

REACTIONS (9)
  - PYREXIA [None]
  - BRONCHOPULMONARY ASPERGILLOSIS [None]
  - PSEUDOMONAL SEPSIS [None]
  - INTESTINAL PERFORATION [None]
  - NEUTROPENIA [None]
  - CANDIDIASIS [None]
  - SINUSITIS ASPERGILLUS [None]
  - ORO-PHARYNGEAL ASPERGILLOSIS [None]
  - ASPERGILLOSIS ORAL [None]
